FAERS Safety Report 9390757 (Version 2)
Quarter: 2013Q3

REPORT INFORMATION
  Report Type: Spontaneous
  Country: US (occurrence: US)
  Receive Date: 20130709
  Receipt Date: 20130731
  Transmission Date: 20140515
  Serious: No
  Sender: FDA-Public Use
  Company Number: US-BAYER-2013-081715

PATIENT
  Age: 31 Year
  Sex: Female
  Weight: 86.03 kg

DRUGS (3)
  1. MIRENA [Suspect]
     Indication: CONTRACEPTION
     Dosage: 20 MCG/24HR, CONT
     Route: 015
     Dates: start: 20130521, end: 20130701
  2. MIRENA [Suspect]
     Indication: MENORRHAGIA
  3. PRENATAL VITAMINS [Concomitant]
     Dosage: 1 DF, QD

REACTIONS (5)
  - Device expulsion [Recovered/Resolved]
  - Metrorrhagia [Recovered/Resolved]
  - Menorrhagia [Recovered/Resolved]
  - Abdominal pain lower [Recovered/Resolved]
  - Abdominal distension [Recovered/Resolved]
